FAERS Safety Report 12918418 (Version 1)
Quarter: 2016Q4

REPORT INFORMATION
  Report Type: Spontaneous
  Country: US (occurrence: US)
  Receive Date: 20161107
  Receipt Date: 20161107
  Transmission Date: 20170207
  Serious: Yes (Other)
  Sender: FDA-Public Use
  Company Number: US-PFIZER INC-2016415431

PATIENT
  Age: 71 Year
  Sex: Female

DRUGS (5)
  1. GABAPENTIN. [Suspect]
     Active Substance: GABAPENTIN
     Indication: BACK PAIN
     Dosage: 800 MG, 3X/DAY
  2. GABAPENTIN. [Suspect]
     Active Substance: GABAPENTIN
     Dosage: UNK (GIVEN MY 3600 PER DAY GABAPENTIN)
  3. GABAPENTIN. [Suspect]
     Active Substance: GABAPENTIN
     Dosage: UNK
     Dates: start: 2006, end: 2015
  4. GABAPENTIN. [Suspect]
     Active Substance: GABAPENTIN
     Dosage: UNK
     Dates: start: 2016
  5. GABAPENTIN. [Suspect]
     Active Substance: GABAPENTIN
     Dosage: 900 MG, 4X/DAY

REACTIONS (7)
  - Rib fracture [Unknown]
  - Ankle fracture [Unknown]
  - Neuralgia [Unknown]
  - Road traffic accident [Unknown]
  - Liver injury [Unknown]
  - Drug ineffective for unapproved indication [Unknown]
  - Hip fracture [Unknown]
